FAERS Safety Report 7225270-6 (Version None)
Quarter: 2011Q1

REPORT INFORMATION
  Report Type: 
  Country: None (occurrence: None)
  Receive Date: 20110113
  Receipt Date: 20110111
  Transmission Date: 20110831
  Serious: Yes (Other)
  Sender: FDA-Public Use
  Company Number: B0692977A

PATIENT
  Age: 9 Year
  Sex: Female

DRUGS (6)
  1. LAMOTRIGINE [Suspect]
     Route: 048
  2. VALPROATE SODIUM [Concomitant]
     Indication: EPILEPSY
     Dosage: 1200MG PER DAY
  3. ALBUTEROL [Concomitant]
     Indication: ASTHMA
  4. LAMOTRIGINE [Suspect]
     Indication: EPILEPSY
     Route: 048
     Dates: start: 20101213
  5. BECLOMETHASONE DIPROPIONATE [Concomitant]
     Indication: ASTHMA
     Dosage: 400MCG PER DAY
  6. AMOXICILLIN [Suspect]
     Indication: UPPER RESPIRATORY TRACT INFECTION
     Route: 048
     Dates: start: 20101220, end: 20101228

REACTIONS (6)
  - RHINITIS [None]
  - RASH [None]
  - LIP PAIN [None]
  - STEVENS-JOHNSON SYNDROME [None]
  - LIP DRY [None]
  - EYE PAIN [None]
